FAERS Safety Report 8286278-5 (Version None)
Quarter: 2012Q2

REPORT INFORMATION
  Report Type: 
  Country: None (occurrence: None)
  Receive Date: 20120416
  Receipt Date: 20120404
  Transmission Date: 20120825
  Serious: Yes (Hospitalization, Other)
  Sender: FDA-Public Use
  Company Number: JP-SP-2010-05823

PATIENT
  Age: 65 Year
  Sex: Male

DRUGS (1)
  1. IMMUCYST [Suspect]
     Indication: BLADDER CANCER
     Route: 043
     Dates: start: 20091001

REACTIONS (4)
  - SCROTAL ABSCESS [None]
  - SCROTAL SWELLING [None]
  - EPIDIDYMITIS TUBERCULOUS [None]
  - SCROTAL PAIN [None]
